FAERS Safety Report 9746823 (Version 1)
Quarter: 2013Q4

REPORT INFORMATION
  Report Type: Spontaneous
  Country: US (occurrence: US)
  Receive Date: 20131211
  Receipt Date: 20131211
  Transmission Date: 20140711
  Serious: Yes (Other)
  Sender: FDA-Public Use
  Company Number: US-AMGEN-USASP2013085425

PATIENT
  Age: 56 Year
  Sex: Female

DRUGS (5)
  1. NEULASTA [Suspect]
     Indication: PRODUCT USED FOR UNKNOWN INDICATION
     Dosage: UNK UNK, ONE TIME DOSE
     Route: 065
     Dates: start: 20120912, end: 20120912
  2. CISPLATIN [Concomitant]
     Indication: OVARIAN CANCER
     Dosage: UNK, SIX 28 DAYS CYCLE (ON DAYS 1 AND 8)
     Dates: start: 201208
  3. GEMZAR [Concomitant]
     Indication: OVARIAN CANCER
     Dosage: UNK, SIX 28 DAYS CYCLE (ON DAYS 1 AND 8)
     Dates: start: 201208
  4. DEXAMETHASONE [Concomitant]
     Dosage: 8 MG, DAILY FOR 3 DAYS AFTER CHEMOTHERAPY
     Dates: end: 20120922
  5. PREDNISONE [Concomitant]
     Dosage: 60 MG, UNK

REACTIONS (18)
  - Vasculitis [Unknown]
  - Neoplasm malignant [Unknown]
  - Mania [Unknown]
  - Joint swelling [Unknown]
  - Pain in extremity [Unknown]
  - Local swelling [Unknown]
  - Pain [Unknown]
  - Chest pain [Unknown]
  - Gastrointestinal disorder [Unknown]
  - Mobility decreased [Unknown]
  - Asthenia [Unknown]
  - Wound infection fungal [Unknown]
  - Vein disorder [Unknown]
  - Haematoma [Unknown]
  - Oedema peripheral [Unknown]
  - White blood cell count decreased [Unknown]
  - Arthralgia [Unknown]
  - Erythema [Unknown]
